FAERS Safety Report 8030422 (Version 8)
Quarter: 2013Q3

REPORT INFORMATION
  Report Type: Report from Study
  Country: US (occurrence: US)
  Receive Date: 20110712
  Receipt Date: 20130820
  Transmission Date: 20140515
  Serious: Yes (Hospitalization, Other)
  Sender: FDA-Public Use
  Company Number: US-ELI_LILLY_AND_COMPANY-US201107001825

PATIENT
  Age: 75 Year
  Sex: Female
  Weight: 36.78 kg

DRUGS (3)
  1. TERIPARATIDE [Suspect]
     Indication: OSTEOPOROSIS
     Dosage: 20 UG, QD
     Route: 058
  2. TERIPARATIDE [Suspect]
     Dosage: 20 UG, QD
     Route: 058
     Dates: start: 20110802
  3. TERIPARATIDE [Suspect]
     Dosage: 20 UG, QD

REACTIONS (5)
  - Pneumonia [Unknown]
  - Hip fracture [Unknown]
  - Fall [Unknown]
  - Bronchitis [Recovered/Resolved]
  - Pain in extremity [Recovered/Resolved]
